FAERS Safety Report 5591649-1 (Version None)
Quarter: 2008Q1

REPORT INFORMATION
  Report Type: 
  Country: None (occurrence: None)
  Receive Date: 20080115
  Receipt Date: 20080109
  Transmission Date: 20080703
  Serious: Yes (Hospitalization)
  Sender: FDA-Public Use
  Company Number: PHHY2008JP00559

PATIENT
  Age: 81 Year
  Sex: Female

DRUGS (2)
  1. EURAX HC (NCH) [Suspect]
     Indication: FUNGAL INFECTION
     Route: 061
     Dates: start: 20071215, end: 20071227
  2. LAMISIL [Suspect]
     Indication: FUNGAL INFECTION
     Dosage: UNK, UNK
     Route: 061
     Dates: start: 20071215, end: 20071227

REACTIONS (1)
  - ECZEMA [None]
